FAERS Safety Report 23588895 (Version 1)
Quarter: 2024Q1

REPORT INFORMATION
  Report Type: Spontaneous
  Country: US (occurrence: US)
  Receive Date: 20240304
  Receipt Date: 20240304
  Transmission Date: 20240410
  Serious: No
  Sender: FDA-Public Use
  Company Number: US-BRISTOL-MYERS SQUIBB COMPANY-2024-034587

PATIENT
  Age: 87 Year
  Sex: Female
  Weight: 7.71 kg

DRUGS (1)
  1. REVLIMID [Suspect]
     Active Substance: LENALIDOMIDE
     Indication: Myelodysplastic syndrome
     Dosage: 1 CAPSULE DAILY FOR 14 DAYS, THEN 14 DAYS OFF
     Route: 048

REACTIONS (2)
  - Off label use [Unknown]
  - Creatinine renal clearance decreased [Unknown]
